FAERS Safety Report 12359371 (Version 1)
Quarter: 2016Q2

REPORT INFORMATION
  Report Type: Spontaneous
  Country: US (occurrence: US)
  Receive Date: 20160512
  Receipt Date: 20160512
  Transmission Date: 20160815
  Serious: Yes (Hospitalization, Other)
  Sender: FDA-Public Use
  Company Number: US-GLAXOSMITHKLINE-CHPA2016US003668

PATIENT
  Age: 61 Year
  Sex: Female

DRUGS (3)
  1. EX-LAX MAXIMUM STRENGTH STIMULANT LAXATIVE [Suspect]
     Active Substance: SENNOSIDES
     Dosage: UNK
  2. EX-LAX MAXIMUM STRENGTH STIMULANT LAXATIVE [Suspect]
     Active Substance: SENNOSIDES
     Dosage: UNK
  3. EX-LAX MAXIMUM STRENGTH STIMULANT LAXATIVE [Suspect]
     Active Substance: SENNOSIDES
     Indication: CONSTIPATION
     Dosage: 3 TABLETS, UNK
     Route: 048
     Dates: start: 20160315, end: 20160315

REACTIONS (5)
  - Drug ineffective [Unknown]
  - Kidney infection [Unknown]
  - Incorrect dose administered [Unknown]
  - Product label issue [Unknown]
  - Product quality issue [Unknown]

NARRATIVE: CASE EVENT DATE: 20160315
